FAERS Safety Report 6721413-9 (Version None)
Quarter: 2010Q2

REPORT INFORMATION
  Report Type: 
  Country: None (occurrence: None)
  Receive Date: 20100512
  Receipt Date: 20100504
  Transmission Date: 20101027
  Serious: Yes (Hospitalization)
  Sender: FDA-Public Use
  Company Number: AU-NOVOPROD-306233

PATIENT
  Sex: Female

DRUGS (3)
  1. PENMIX 30 PENFILL [Suspect]
     Indication: DRUG USE FOR UNKNOWN INDICATION
  2. NOVORAPID [Concomitant]
     Indication: DRUG USE FOR UNKNOWN INDICATION
  3. LANTUS [Concomitant]

REACTIONS (1)
  - MYOCARDIAL INFARCTION [None]
